FAERS Safety Report 9405374 (Version 1)
Quarter: 2013Q3

REPORT INFORMATION
  Report Type: Spontaneous
  Country: GR (occurrence: GR)
  Receive Date: 20130717
  Receipt Date: 20130717
  Transmission Date: 20140515
  Serious: Yes (Other)
  Sender: FDA-Public Use
  Company Number: GR-009507513-1307GRC006314

PATIENT
  Age: 78 Year
  Sex: Female

DRUGS (2)
  1. FOSAMAX [Suspect]
     Route: 048
  2. FEMARA [Concomitant]
     Route: 048

REACTIONS (5)
  - Metastases to lymph nodes [Unknown]
  - Weight decreased [Not Recovered/Not Resolved]
  - Dermatitis allergic [Unknown]
  - Bone pain [Unknown]
  - Weight bearing difficulty [Unknown]
